FAERS Safety Report 23614215 (Version 1)
Quarter: 2024Q1

REPORT INFORMATION
  Report Type: Spontaneous
  Country: RU (occurrence: RU)
  Receive Date: 20240310
  Receipt Date: 20240310
  Transmission Date: 20240410
  Serious: Yes (Disabling)
  Sender: FDA-Public Use
  Company Number: RU-LUNDBECK-DKLU3075029

PATIENT
  Age: 27 Year
  Sex: Female

DRUGS (3)
  1. CIPRALEX [Suspect]
     Active Substance: ESCITALOPRAM OXALATE
     Indication: Product used for unknown indication
     Route: 065
     Dates: start: 20230501
  2. CIPRALEX [Suspect]
     Active Substance: ESCITALOPRAM OXALATE
     Indication: Product used for unknown indication
     Route: 065
  3. TRIMEPRAZINE TARTRATE [Concomitant]
     Active Substance: TRIMEPRAZINE TARTRATE
     Indication: Anxiety
     Route: 065
     Dates: start: 20240221, end: 20240228

REACTIONS (2)
  - Syncope [Not Recovered/Not Resolved]
  - Suspected counterfeit product [Unknown]

NARRATIVE: CASE EVENT DATE: 20240229
